FAERS Safety Report 23979480 (Version 1)
Quarter: 2024Q2

REPORT INFORMATION
  Report Type: Spontaneous
  Country: DE (occurrence: DE)
  Receive Date: 20240616
  Receipt Date: 20240616
  Transmission Date: 20240715
  Serious: Yes (Other)
  Sender: FDA-Public Use
  Company Number: None

PATIENT
  Age: 5 Year
  Sex: Female
  Weight: 19 kg

DRUGS (1)
  1. FERRLECIT [Suspect]
     Active Substance: SODIUM FERRIC GLUCONATE COMPLEX
     Indication: Iron deficiency anaemia
     Dosage: 215 MG (ONLY 86 MG ADMINISTERED)
     Route: 042
     Dates: start: 20240529, end: 20240529

REACTIONS (5)
  - Syncope [Recovering/Resolving]
  - Abdominal pain [Recovering/Resolving]
  - Pyrexia [Recovering/Resolving]
  - Hypotension [Recovering/Resolving]
  - Vomiting [Recovering/Resolving]

NARRATIVE: CASE EVENT DATE: 20240529
